FAERS Safety Report 25335854 (Version 1)
Quarter: 2025Q2

REPORT INFORMATION
  Report Type: Report from Study
  Country: RU (occurrence: RU)
  Receive Date: 20250520
  Receipt Date: 20250520
  Transmission Date: 20250716
  Serious: Yes (Other)
  Sender: BRAINTREE
  Company Number: RU-BRAINTREE LABORATORIES, INC.-2025BTE00305

PATIENT
  Age: 47 Year
  Sex: Male

DRUGS (1)
  1. MAGNESIUM SULFATE\POTASSIUM SULFATE\SODIUM SULFATE [Suspect]
     Active Substance: MAGNESIUM SULFATE\POTASSIUM SULFATE\SODIUM SULFATE
     Indication: Product used for unknown indication
     Route: 065
     Dates: start: 20250506, end: 20250507

REACTIONS (3)
  - Body temperature increased [Unknown]
  - Vomiting [Recovered/Resolved]
  - Chills [Unknown]

NARRATIVE: CASE EVENT DATE: 20250501
